FAERS Safety Report 23909480 (Version 1)
Quarter: 2024Q2

REPORT INFORMATION
  Report Type: Spontaneous
  Country: US (occurrence: US)
  Receive Date: 20240528
  Receipt Date: 20240528
  Transmission Date: 20240716
  Serious: Yes (Hospitalization)
  Sender: FDA-Public Use
  Company Number: US-PFIZER INC-PV202400068874

PATIENT
  Age: 15 Year
  Sex: Female

DRUGS (5)
  1. SOLU-MEDROL [Suspect]
     Active Substance: METHYLPREDNISOLONE SODIUM SUCCINATE
     Indication: COVID-19 pneumonia
     Dosage: UNK
     Route: 042
  2. MORPHINE [Concomitant]
     Active Substance: MORPHINE
  3. REMDESIVIR [Concomitant]
     Active Substance: REMDESIVIR
  4. ENOXAPARIN [Concomitant]
     Active Substance: ENOXAPARIN
  5. CEFTRIAXONE [Concomitant]
     Active Substance: CEFTRIAXONE\CEFTRIAXONE SODIUM

REACTIONS (2)
  - Psychotic disorder [Recovered/Resolved]
  - Off label use [Unknown]
